FAERS Safety Report 8605490 (Version 2)
Quarter: 2012Q4

REPORT INFORMATION
  Report Type: 
  Country: FR (occurrence: FR)
  Receive Date: 20120608
  Receipt Date: 20121217
  Transmission Date: 20130627
  Serious: Yes (Hospitalization)
  Sender: FDA-Public Use
  Company Number: FR-GLAXOSMITHKLINE-B0805443A

PATIENT
  Age: 51 Year
  Sex: Female
  Weight: 63 kg

DRUGS (7)
  1. ARIXTRA [Suspect]
     Indication: PRODUCT USED FOR UNKNOWN INDICATION
     Dosage: 7.5MG Per day
     Route: 058
     Dates: start: 20120323, end: 20120519
  2. PREVISCAN [Concomitant]
     Dates: start: 201007
  3. BACTRIM [Concomitant]
     Dates: start: 201204
  4. AMOXICILLIN [Concomitant]
     Dosage: 1G Four times per day
     Dates: start: 201204
  5. CIFLOX [Concomitant]
     Dosage: 750UNIT Twice per day
     Dates: start: 201204
  6. CORTICOSTEROIDS [Concomitant]
  7. NSAIDS [Concomitant]

REACTIONS (3)
  - Haematuria [Recovered/Resolved]
  - Haemorrhagic anaemia [Recovered/Resolved]
  - Incorrect drug administration duration [Unknown]
